FAERS Safety Report 11165656 (Version 2)
Quarter: 2015Q2

REPORT INFORMATION
  Report Type: Report from Study
  Country: DE (occurrence: DE)
  Receive Date: 20150604
  Receipt Date: 20150610
  Transmission Date: 20150821
  Serious: Yes (Other)
  Sender: FDA-Public Use
  Company Number: DE-ASTELLAS-2015EU006640

PATIENT
  Sex: Male

DRUGS (3)
  1. CELLCEPT [Concomitant]
     Active Substance: MYCOPHENOLATE MOFETIL\MYCOPHENOLATE MOFETIL HYDROCHLORIDE
     Indication: IMMUNOSUPPRESSION
     Dosage: 500 MG, THREE TIMES DAILY
     Route: 048
     Dates: start: 20141204, end: 20150510
  2. CELLCEPT [Concomitant]
     Active Substance: MYCOPHENOLATE MOFETIL\MYCOPHENOLATE MOFETIL HYDROCHLORIDE
     Dosage: 500 MG, FOUR TIMES DAILY
     Route: 048
     Dates: start: 20150511
  3. TACROLIMUS. [Suspect]
     Active Substance: TACROLIMUS
     Indication: IMMUNOSUPPRESSION
     Route: 048
     Dates: start: 20140625

REACTIONS (2)
  - HLA marker study positive [Not Recovered/Not Resolved]
  - Cell marker increased [Not Recovered/Not Resolved]

NARRATIVE: CASE EVENT DATE: 20150408
